FAERS Safety Report 4413237-2 (Version None)
Quarter: 2004Q3

REPORT INFORMATION
  Report Type: 
  Country: None (occurrence: None)
  Receive Date: 20040802
  Receipt Date: 20030805
  Transmission Date: 20050211
  Serious: Yes (Hospitalization)
  Sender: FDA-Public Use
  Company Number: US-BRISTOL-MYERS SQUIBB COMPANY-12347399

PATIENT
  Age: 75 Year
  Sex: Male

DRUGS (2)
  1. WARFARIN SODIUM [Suspect]
     Indication: ATRIAL FIBRILLATION
     Dosage: DOSE WAS ON 25MG/WK, WAS STOPPED PRIOR TO ENDOSCOPY, AND RESTARTED AT 22.5MG/WK.
  2. FLUCONAZOLE [Interacting]
     Dosage: 200 MG QID VS PER 1 DAY FOR 1 WK, FOLLOWED BY 100MG QID VS PER 1 DAY FOR 3 WKS
     Route: 048

REACTIONS (10)
  - CANDIDIASIS [None]
  - DRUG INTERACTION [None]
  - EXTRADURAL HAEMATOMA [None]
  - FAECAL INCONTINENCE [None]
  - INTERNATIONAL NORMALISED RATIO INCREASED [None]
  - NEUROGENIC BLADDER [None]
  - OESOPHAGEAL ULCER [None]
  - PAIN [None]
  - PROTHROMBIN TIME PROLONGED [None]
  - URINARY INCONTINENCE [None]
